FAERS Safety Report 9364636 (Version 2)
Quarter: 2013Q2

REPORT INFORMATION
  Report Type: Spontaneous
  Country: AU (occurrence: AU)
  Receive Date: 20130624
  Receipt Date: 20130628
  Transmission Date: 20140414
  Serious: Yes (Hospitalization, Other)
  Sender: FDA-Public Use
  Company Number: AU-009507513-1212AUS009548

PATIENT
  Age: 25 Year
  Sex: Female

DRUGS (1)
  1. IMPLANON NXT [Suspect]
     Indication: CONTRACEPTION
     Dosage: UNK
     Route: 059
     Dates: start: 20120803, end: 20121221

REACTIONS (3)
  - HELLP syndrome [Unknown]
  - Premature delivery [Unknown]
  - Unintended pregnancy [Recovered/Resolved]
